FAERS Safety Report 17464276 (Version 1)
Quarter: 2020Q1

REPORT INFORMATION
  Report Type: Spontaneous
  Country: BG (occurrence: BG)
  Receive Date: 20200226
  Receipt Date: 20200226
  Transmission Date: 20200409
  Serious: Yes (Hospitalization)
  Sender: FDA-Public Use
  Company Number: BG-MYLANLABS-2020M1021006

PATIENT
  Age: 74 Year
  Sex: Female

DRUGS (3)
  1. OLMESARTAN [Suspect]
     Active Substance: OLMESARTAN
     Dosage: 10 MG X 1/DAILY FROM JULY 2017 (ONSET DATE OF INITIAL THERAPY IS UNKNOWN)
     Route: 065
     Dates: start: 201707
  2. OLMESARTAN [Suspect]
     Active Substance: OLMESARTAN
     Indication: HYPERTENSION
     Dosage: ACCORDING TO THE PATIENT^SDATA INITIAL ONSET HAD BEEN APPROXIMATELY2-3 YEARS (BEFORE JULY 2017)
     Route: 065
  3. VALSARTAN. [Suspect]
     Active Substance: VALSARTAN
     Indication: HYPERTENSION
     Dosage: STARTED IN PERIOD OF JULY 2017-SEPTEMBER 2018
     Route: 065

REACTIONS (1)
  - Malignant melanoma [Recovering/Resolving]
